FAERS Safety Report 9691061 (Version 5)
Quarter: 2014Q1

REPORT INFORMATION
  Report Type: Report from Study
  Country: US (occurrence: US)
  Receive Date: 20131115
  Receipt Date: 20140114
  Transmission Date: 20141002
  Serious: Yes (Hospitalization)
  Sender: FDA-Public Use
  Company Number: US-JNJFOC-20131106135

PATIENT
  Age: 13 Year
  Sex: Male
  Weight: 35.6 kg

DRUGS (9)
  1. REMICADE [Suspect]
     Indication: CROHN^S DISEASE
     Route: 042
     Dates: start: 20090715
  2. 5-ASA [Concomitant]
     Indication: PRODUCT USED FOR UNKNOWN INDICATION
     Route: 048
  3. ZYRTEC [Concomitant]
     Route: 065
  4. NASONEX [Concomitant]
     Route: 065
  5. PRILOSEC [Concomitant]
     Route: 065
  6. IRON [Concomitant]
     Route: 065
  7. ALBUTEROL [Concomitant]
     Route: 065
  8. OMEGA 3 FATTY ACIDS [Concomitant]
     Route: 065
  9. MULTIVITAMINS [Concomitant]
     Route: 065

REACTIONS (1)
  - Crohn^s disease [Recovered/Resolved]
